FAERS Safety Report 8838520 (Version 1)
Quarter: 2012Q4

REPORT INFORMATION
  Report Type: 
  Country: US (occurrence: US)
  Receive Date: 20121012
  Receipt Date: 20121012
  Transmission Date: 20130627
  Serious: No
  Sender: FDA-Public Use
  Company Number: US-PFIZER INC-2012173904

PATIENT
  Age: 46 Year
  Sex: Male
  Weight: 84.81 kg

DRUGS (4)
  1. CHANTIX [Suspect]
     Indication: SMOKING CESSATION THERAPY
     Dosage: UNK
     Route: 048
  2. CHANTIX [Suspect]
     Dosage: 0.5 mg, daily
     Route: 048
     Dates: start: 20120919, end: 2012
  3. CHANTIX [Suspect]
     Dosage: 1 mg, 2x/day
     Route: 048
     Dates: start: 2012, end: 20121005
  4. TRAZODONE [Concomitant]
     Indication: SLEEP DISORDER
     Dosage: 50 mg,daily

REACTIONS (5)
  - Drug dispensing error [Unknown]
  - Nausea [Recovered/Resolved]
  - Restlessness [Recovered/Resolved]
  - Bowel movement irregularity [Recovered/Resolved]
  - Anxiety [Recovered/Resolved]
